FAERS Safety Report 4283858-9 (Version None)
Quarter: 2004Q1

REPORT INFORMATION
  Report Type: 
  Country: None (occurrence: None)
  Receive Date: 20040130
  Receipt Date: 20040120
  Transmission Date: 20041129
  Serious: Yes (Hospitalization)
  Sender: FDA-Public Use
  Company Number: US-JNJFOC-20040104035

PATIENT
  Age: 58 Year
  Sex: Female
  Weight: 80.7403 kg

DRUGS (9)
  1. INFLIXIMAB (INFLIXIMAB, RECOMBINANT) LYOPHILIZED POWDER [Suspect]
     Indication: RHEUMATOID ARTHRITIS
     Dosage: INTRAVENOUS
     Route: 042
     Dates: start: 20000913
  2. METHOTREXATE [Concomitant]
  3. PREDNISONE [Concomitant]
  4. PROTONIX [Concomitant]
  5. FOLIC ACID [Concomitant]
  6. COUMADIN [Concomitant]
  7. TOPROL (METOPROLOL SUCCINATE) [Concomitant]
  8. NORVASC [Concomitant]
  9. PAXIL [Concomitant]

REACTIONS (5)
  - ALANINE AMINOTRANSFERASE INCREASED [None]
  - ASPARTATE AMINOTRANSFERASE INCREASED [None]
  - RETROPERITONEAL HAEMORRHAGE [None]
  - SCIATICA [None]
  - SPINAL COLUMN STENOSIS [None]
